FAERS Safety Report 8580118-2 (Version None)
Quarter: 2012Q3

REPORT INFORMATION
  Report Type: 
  Country: None (occurrence: None)
  Receive Date: 20120808
  Receipt Date: 20120808
  Transmission Date: 20120928
  Serious: Yes (Other)
  Sender: FDA-Public Use
  Company Number: CN-PFIZER INC-2012028501

PATIENT
  Age: 35 Year
  Sex: Male

DRUGS (3)
  1. FLUVOXAMINE [Concomitant]
     Dosage: UNK
  2. ZOLOFT [Suspect]
     Indication: DEPRESSION
  3. ZOLOFT [Suspect]
     Indication: OBSESSIVE-COMPULSIVE DISORDER
     Dosage: 50 MG, 2X/DAY
     Route: 048

REACTIONS (6)
  - DRUG INEFFECTIVE [None]
  - MUSCULOSKELETAL STIFFNESS [None]
  - DRUG DEPENDENCE [None]
  - ANXIETY [None]
  - STEREOTYPY [None]
  - AFFECT LABILITY [None]
